FAERS Safety Report 19261465 (Version 2)
Quarter: 2021Q4

REPORT INFORMATION
  Report Type: Spontaneous
  Country: US (occurrence: US)
  Receive Date: 20210515
  Receipt Date: 20211120
  Transmission Date: 20220303
  Serious: Yes (Hospitalization, Other)
  Sender: FDA-Public Use
  Company Number: US-AUROBINDO-AUR-APL-2021-019437

PATIENT
  Age: 14 Year
  Sex: Female

DRUGS (1)
  1. DIPHENHYDRAMINE HYDROCHLORIDE [Suspect]
     Active Substance: DIPHENHYDRAMINE HYDROCHLORIDE
     Indication: Product used for unknown indication
     Dosage: 100 DOSAGE FORM
     Route: 048

REACTIONS (11)
  - Anticholinergic syndrome [Recovered/Resolved]
  - Agitation [Recovered/Resolved]
  - Hypertension [Recovered/Resolved]
  - Tachycardia [Recovered/Resolved]
  - Hallucination [Recovered/Resolved]
  - Vomiting [Unknown]
  - Urinary incontinence [Unknown]
  - Mydriasis [Recovered/Resolved]
  - Dry skin [Recovered/Resolved]
  - Speech disorder [Recovered/Resolved]
  - Overdose [Unknown]
